FAERS Safety Report 8511174-5 (Version None)
Quarter: 2012Q2

REPORT INFORMATION
  Report Type: 
  Country: None (occurrence: None)
  Receive Date: 20120629
  Receipt Date: 20120619
  Transmission Date: 20120825
  Serious: Yes (Hospitalization, Other)
  Sender: FDA-Public Use
  Company Number: 2012SP032695

PATIENT
  Age: 72 Year
  Sex: Female

DRUGS (1)
  1. DESOGESTREL AND ETHINYL ESTRADIOL [Suspect]
     Indication: PRODUCT USED FOR UNKNOWN INDICATION
     Dosage: PO
     Route: 048
     Dates: start: 19850101

REACTIONS (5)
  - NERVE COMPRESSION [None]
  - ALOPECIA [None]
  - PULMONARY EMBOLISM [None]
  - SCIATIC NERVE INJURY [None]
  - THROMBOSIS [None]
